FAERS Safety Report 25382718 (Version 1)
Quarter: 2025Q2

REPORT INFORMATION
  Report Type: Spontaneous
  Country: BR (occurrence: BR)
  Receive Date: 20250602
  Receipt Date: 20250602
  Transmission Date: 20250716
  Serious: Yes (Other)
  Sender: BOEHRINGER INGELHEIM
  Company Number: BR-Komodo Health-a23aa000007qaRZAAY

PATIENT
  Sex: Male
  Weight: 65 kg

DRUGS (1)
  1. OLODATEROL HYDROCHLORIDE\TIOTROPIUM BROMIDE MONOHYDRATE [Suspect]
     Active Substance: OLODATEROL HYDROCHLORIDE\TIOTROPIUM BROMIDE MONOHYDRATE
     Indication: Respiratory failure
     Dosage: FORM: AEROSOL ?2 PUFFS A DAY, ONE IN THE MORNING AND ONE AT NIGHT
     Dates: start: 2025

REACTIONS (4)
  - Cardiac failure [Unknown]
  - Off label use [Not Recovered/Not Resolved]
  - Off label use [Not Recovered/Not Resolved]
  - Device use issue [Unknown]
